FAERS Safety Report 17700225 (Version 1)
Quarter: 2020Q2

REPORT INFORMATION
  Report Type: Report from Study
  Country: CA (occurrence: CA)
  Receive Date: 20200423
  Receipt Date: 20200423
  Transmission Date: 20200714
  Serious: Yes (Other)
  Sender: FDA-Public Use
  Company Number: CA-JNJFOC-20200321143

PATIENT
  Age: 42 Year
  Sex: Female
  Weight: 66.28 kg

DRUGS (1)
  1. SIMPONI [Suspect]
     Active Substance: GOLIMUMAB
     Indication: COLITIS ULCERATIVE
     Route: 058

REACTIONS (4)
  - Flushing [Recovered/Resolved]
  - Pyrexia [Recovered/Resolved]
  - Anal fistula infection [Recovered/Resolved]
  - Varicose vein [Unknown]

NARRATIVE: CASE EVENT DATE: 20200318
